FAERS Safety Report 4553922-5 (Version None)
Quarter: 2005Q1

REPORT INFORMATION
  Report Type: 
  Country: None (occurrence: None)
  Receive Date: 20050118
  Receipt Date: 20041214
  Transmission Date: 20050727
  Serious: Yes (Death)
  Sender: FDA-Public Use
  Company Number: JP-MERCK-0412USA02012

PATIENT
  Age: 82 Year
  Sex: Male

DRUGS (7)
  1. PRIMAXIN [Suspect]
     Indication: LIVER ABSCESS
     Route: 041
     Dates: start: 20041119, end: 20041208
  2. PRIMAXIN [Suspect]
     Route: 041
     Dates: start: 20041209, end: 20041211
  3. EXCELASE [Concomitant]
     Route: 048
     Dates: start: 20041114, end: 20041220
  4. SYMMETREL [Concomitant]
     Route: 048
     Dates: start: 20041114, end: 20041220
  5. TANATRIL [Concomitant]
     Route: 048
     Dates: start: 20041114, end: 20041220
  6. PANALDINE [Concomitant]
     Route: 048
     Dates: start: 20041114, end: 20041220
  7. [THERAPY UNSPECIFIED] [Concomitant]
     Route: 065
     Dates: start: 20041208, end: 20041220

REACTIONS (3)
  - DEATH [None]
  - NEUTROPHIL COUNT DECREASED [None]
  - PLATELET COUNT DECREASED [None]
